FAERS Safety Report 16077706 (Version 2)
Quarter: 2019Q2

REPORT INFORMATION
  Report Type: Spontaneous
  Country: US (occurrence: US)
  Receive Date: 20190315
  Receipt Date: 20190412
  Transmission Date: 20190711
  Serious: Yes (Hospitalization, Disabling, Other)
  Sender: FDA-Public Use
  Company Number: US-PFIZER INC-2019110881

PATIENT
  Age: 62 Year
  Sex: Male
  Weight: 99.8 kg

DRUGS (2)
  1. REVATIO [Suspect]
     Active Substance: SILDENAFIL CITRATE
     Indication: CARDIAC DISORDER
  2. REVATIO [Suspect]
     Active Substance: SILDENAFIL CITRATE
     Indication: DYSPNOEA
     Dosage: 20 MG, 3X/DAY
     Route: 048
     Dates: start: 2017

REACTIONS (4)
  - Bacterial infection [Not Recovered/Not Resolved]
  - Malaise [Unknown]
  - Cardiac failure congestive [Unknown]
  - Weight increased [Unknown]

NARRATIVE: CASE EVENT DATE: 201810
